FAERS Safety Report 17926152 (Version 1)
Quarter: 2020Q2

REPORT INFORMATION
  Report Type: Spontaneous
  Country: DE (occurrence: DE)
  Receive Date: 20200623
  Receipt Date: 20200623
  Transmission Date: 20200714
  Serious: Yes (Hospitalization, Other)
  Sender: FDA-Public Use
  Company Number: DE-DRREDDYS-GER/GER/20/0124191

PATIENT
  Age: 55 Year
  Sex: Female

DRUGS (32)
  1. PEMBROLIZUMAB. [Suspect]
     Active Substance: PEMBROLIZUMAB
     Indication: NON-SMALL CELL LUNG CANCER METASTATIC
     Dosage: 200 MILLIGRAM, EVERY 3 WEEKS; FIRST CYCLE
     Dates: start: 20190502, end: 20190502
  2. NINTEDANIB [Suspect]
     Active Substance: NINTEDANIB
     Dosage: 13TH CYCLE
     Dates: start: 20200526, end: 20200526
  3. PEMBROLIZUMAB. [Suspect]
     Active Substance: PEMBROLIZUMAB
     Dosage: 200 MILLIGRAM, EVERY 3 WEEKS; FIFTH CYCLE
     Dates: start: 20190725, end: 20190725
  4. CARBOPLATIN. [Suspect]
     Active Substance: CARBOPLATIN
     Dosage: FIRST-LINE THERAPY; AUC5, ON DAY1, EVERY 3 WEEKS; SIXTH CYCLE
     Dates: start: 20190822, end: 20190822
  5. DOCETAXEL. [Suspect]
     Active Substance: DOCETAXEL
     Dosage: 75MG/M2, D1, EVERY 3 WEEKS; THIRD CYCLE
     Dates: start: 20191028, end: 20191028
  6. PEMETREXED. [Suspect]
     Active Substance: PEMETREXED
     Indication: NON-SMALL CELL LUNG CANCER METASTATIC
     Dosage: 500 MILLIGRAM/SQ. METEREVERY 3 WEEKS ;2 CYCLES, SECOND-LINE THERAP; SIXTH CYCLE
     Dates: start: 20190822, end: 20190822
  7. PEMETREXED. [Suspect]
     Active Substance: PEMETREXED
     Dosage: 500 MILLIGRAM/SQ. METEREVERY 3 WEEKS ;2 CYCLES, SECOND-LINE THERAP; FIFTH CYCLE
     Dates: start: 20190725, end: 20190725
  8. CARBOPLATIN. [Suspect]
     Active Substance: CARBOPLATIN
     Dosage: FIRST-LINE THERAPY; AUC5, ON DAY1, EVERY 3 WEEKS; THIRD CYCLE
     Dates: start: 20190613, end: 20190613
  9. PEMETREXED. [Suspect]
     Active Substance: PEMETREXED
     Dosage: 500 MILLIGRAM/SQ. METEREVERY 3 WEEKS ;2 CYCLES, SECOND-LINE THERAP; FORTH CYCLE
     Dates: start: 20190704, end: 20190704
  10. PEMBROLIZUMAB. [Suspect]
     Active Substance: PEMBROLIZUMAB
     Dosage: 200 MILLIGRAM, EVERY 3 WEEKS; FORTH CYCLE
     Dates: start: 20190704, end: 20190704
  11. NINTEDANIB [Suspect]
     Active Substance: NINTEDANIB
     Dosage: 100MG, TWO, TWICE DAILY ORAL FROM DAY 2 UNTIL DAY 21, EVERY 3 WEEKS; SECOND CYCLE
     Route: 048
     Dates: start: 20191007, end: 20191007
  12. NINTEDANIB [Suspect]
     Active Substance: NINTEDANIB
     Dosage: 100MG, TWO, TWICE DAILY ORAL FROM DAY 2 UNTIL DAY 21, EVERY 3 WEEKS;FIRST CYCLE
     Route: 048
     Dates: start: 20190912, end: 20190912
  13. DOCETAXEL. [Suspect]
     Active Substance: DOCETAXEL
     Dosage: 7-9TH CYCLE
     Dates: start: 20200123, end: 20200305
  14. PEMETREXED. [Suspect]
     Active Substance: PEMETREXED
     Dosage: 500 MILLIGRAM/SQ. METEREVERY 3 WEEKS ;SECOND-LINE THERAP; FIRST CYCLE
     Dates: start: 20190502, end: 20190725
  15. PEMETREXED. [Suspect]
     Active Substance: PEMETREXED
     Dosage: 500 MILLIGRAM/SQ. METEREVERY 3 WEEKS ;SECOND-LINE THERAP; SECOND CYCLE
     Dates: start: 20190523, end: 20190523
  16. PEMBROLIZUMAB. [Suspect]
     Active Substance: PEMBROLIZUMAB
     Dosage: 200 MILLIGRAM, EVERY 3 WEEKS; THIRD CYCLE
     Dates: start: 20190613, end: 20190613
  17. NINTEDANIB [Suspect]
     Active Substance: NINTEDANIB
     Indication: NON-SMALL CELL LUNG CANCER METASTATIC
     Dosage: 10-12TH CYCLE
     Dates: start: 20200326, end: 20200507
  18. NINTEDANIB [Suspect]
     Active Substance: NINTEDANIB
     Dosage: 100MG, TWO, TWICE DAILY ORAL FROM DAY 2 UNTIL DAY 21, EVERY 3 WEEKS; THIRD CYCLE
     Route: 048
     Dates: start: 20191028, end: 20191028
  19. CARBOPLATIN. [Suspect]
     Active Substance: CARBOPLATIN
     Indication: NON-SMALL CELL LUNG CANCER METASTATIC
     Dosage: FIRST-LINE THERAPY; AUC5, ON DAY1, EVERY 3 WEEKS; FIFTH CYCLE
     Dates: start: 20190725, end: 20190725
  20. CARBOPLATIN. [Suspect]
     Active Substance: CARBOPLATIN
     Dosage: FIRST-LINE THERAPY; AUC5, ON DAY1, EVERY 3 WEEKS; FORTH CYCLE
     Dates: start: 20190704, end: 20190704
  21. CARBOPLATIN. [Suspect]
     Active Substance: CARBOPLATIN
     Dosage: FIRST-LINE THERAPY; AUC5, ON DAY1, EVERY 3 WEEKS; SECOND CYCLE
     Dates: start: 20190523, end: 20190523
  22. DOCETAXEL. [Suspect]
     Active Substance: DOCETAXEL
     Dosage: 10-12TH CYCLE
     Dates: start: 20200326, end: 20200507
  23. PEMETREXED. [Suspect]
     Active Substance: PEMETREXED
     Dosage: 500 MILLIGRAM/SQ. METEREVERY 3 WEEKS ;SECOND-LINE THERAP; THIRD CYCLE
     Dates: start: 20190613, end: 20190613
  24. NINTEDANIB [Suspect]
     Active Substance: NINTEDANIB
     Dosage: 7-9TH CYCLE
     Dates: start: 20200123, end: 20200305
  25. DOCETAXEL. [Suspect]
     Active Substance: DOCETAXEL
     Indication: NON-SMALL CELL LUNG CANCER METASTATIC
     Dosage: 75MG/M2, D1, EVERY 3 WEEKS; SECOND CYCLE
     Dates: start: 20191007, end: 20191007
  26. DOCETAXEL. [Suspect]
     Active Substance: DOCETAXEL
     Dosage: 75MG/M2, D1, EVERY 3 WEEKS; FIRST CYCLE
     Dates: start: 20190912, end: 20190912
  27. DOCETAXEL. [Suspect]
     Active Substance: DOCETAXEL
     Dosage: 4-6TH CYCLE
     Dates: start: 20191119, end: 20200102
  28. DOCETAXEL. [Suspect]
     Active Substance: DOCETAXEL
     Dosage: 13TH CYCLE
     Dates: start: 20200526, end: 20200526
  29. PEMBROLIZUMAB. [Suspect]
     Active Substance: PEMBROLIZUMAB
     Dosage: 200 MILLIGRAM, EVERY 3 WEEKS; SIXTH CYCLE
     Dates: start: 20190822, end: 20190822
  30. PEMBROLIZUMAB. [Suspect]
     Active Substance: PEMBROLIZUMAB
     Dosage: 200 MILLIGRAM, EVERY 3 WEEKS; SECOND CYCLE
     Dates: start: 20190523, end: 20190523
  31. NINTEDANIB [Suspect]
     Active Substance: NINTEDANIB
     Dosage: 4-6TH CYCLE
     Dates: start: 20191119, end: 20200102
  32. CARBOPLATIN. [Suspect]
     Active Substance: CARBOPLATIN
     Dosage: FIRST-LINE THERAPY; AUC5, ON DAY1, EVERY 3 WEEKS; FIRST CYCLE
     Dates: start: 20190502, end: 20190502

REACTIONS (9)
  - Malignant neoplasm progression [Unknown]
  - Inappropriate schedule of product administration [Unknown]
  - Venous thrombosis [Recovering/Resolving]
  - Nausea [Unknown]
  - Neuropathy peripheral [Unknown]
  - Diarrhoea [Unknown]
  - Diarrhoea [Unknown]
  - Febrile neutropenia [Unknown]
  - Pneumonitis [Unknown]

NARRATIVE: CASE EVENT DATE: 20190627
